FAERS Safety Report 17122019 (Version 1)
Quarter: 2019Q4

REPORT INFORMATION
  Report Type: Spontaneous
  Country: US (occurrence: US)
  Receive Date: 20191114
  Receipt Date: 20191114
  Transmission Date: 20200122
  Serious: Yes (Hospitalization)
  Sender: FDA-Public Use
  Company Number: None

PATIENT
  Sex: Male
  Weight: 95.5 kg

DRUGS (1)
  1. DEXAMETHASONE. [Suspect]
     Active Substance: DEXAMETHASONE

REACTIONS (11)
  - Electrocardiogram QRS complex abnormal [None]
  - Sinus arrhythmia [None]
  - Pleural effusion [None]
  - Blood albumin decreased [None]
  - Abnormal behaviour [None]
  - Ventricular extrasystoles [None]
  - Left atrial enlargement [None]
  - Pyrexia [None]
  - Confusional state [None]
  - Hypercalcaemia [None]
  - Electrocardiogram QT prolonged [None]

NARRATIVE: CASE EVENT DATE: 20150609
